FAERS Safety Report 6637445-5 (Version None)
Quarter: 2010Q1

REPORT INFORMATION
  Report Type: 
  Country: None (occurrence: None)
  Receive Date: 20100311
  Receipt Date: 20100301
  Transmission Date: 20100710
  Serious: Yes (Other)
  Sender: FDA-Public Use
  Company Number: DSA_42584_2010

PATIENT
  Sex: Male

DRUGS (3)
  1. BUPROPION HCL [Suspect]
     Indication: DEPRESSION
     Dosage: 150 MG, TOTAL DAILY DOSE, ORAL
     Route: 048
     Dates: start: 20090618, end: 20091216
  2. BUPROPION HCL [Suspect]
     Indication: SCHIZOTYPAL PERSONALITY DISORDER
     Dosage: 150 MG, TOTAL DAILY DOSE, ORAL
     Route: 048
     Dates: start: 20090618, end: 20091216
  3. ARIPIPRAZOLE [Suspect]
     Indication: DRUG USE FOR UNKNOWN INDICATION
     Dosage: 10 MG, TOTAL DAILY DOSE ORAL
     Route: 048
     Dates: start: 20071103

REACTIONS (1)
  - BLOOD BILIRUBIN INCREASED [None]
